FAERS Safety Report 6706402-2 (Version None)
Quarter: 2010Q2

REPORT INFORMATION
  Report Type: 
  Country: None (occurrence: None)
  Receive Date: 20100430
  Receipt Date: 20100430
  Transmission Date: 20101027
  Serious: Yes (Other)
  Sender: FDA-Public Use
  Company Number: None

PATIENT
  Age: 35 Year
  Sex: Female
  Weight: 58.9676 kg

DRUGS (1)
  1. ORTHO EVRA [Suspect]
     Indication: CONTRACEPTION
     Dosage: PATCH WEEKLY TRANSDERMAL
     Route: 062
     Dates: start: 20040901, end: 20100428

REACTIONS (2)
  - PRODUCT FORMULATION ISSUE [None]
  - VAGINAL HAEMORRHAGE [None]
